FAERS Safety Report 12631658 (Version 2)
Quarter: 2016Q3

REPORT INFORMATION
  Report Type: Spontaneous
  Country: US (occurrence: US)
  Receive Date: 20160808
  Receipt Date: 20160808
  Transmission Date: 20161109
  Serious: No
  Sender: FDA-Public Use
  Company Number: US-BEH-2015055229

PATIENT
  Sex: Female
  Weight: 72 kg

DRUGS (34)
  1. EPIPEN [Concomitant]
     Active Substance: EPINEPHRINE
  2. DIAZEPAM. [Concomitant]
     Active Substance: DIAZEPAM
  3. CULTURELLE [Concomitant]
     Active Substance: LACTOBACILLUS RHAMNOSUS
  4. OTHER MINERAL SUPPLEMENTS [Concomitant]
     Active Substance: MINERALS
  5. HIZENTRA [Suspect]
     Active Substance: HUMAN IMMUNOGLOBULIN G
     Indication: IMMUNODEFICIENCY COMMON VARIABLE
     Route: 058
  6. HYDROCORTISONE. [Concomitant]
     Active Substance: HYDROCORTISONE
  7. SYMBICORT [Concomitant]
     Active Substance: BUDESONIDE\FORMOTEROL FUMARATE DIHYDRATE
  8. ASPIRIN. [Concomitant]
     Active Substance: ASPIRIN
  9. FOLIC ACID. [Concomitant]
     Active Substance: FOLIC ACID
  10. PROAIR HFA [Concomitant]
     Active Substance: ALBUTEROL SULFATE
  11. NITROLINGUAL [Concomitant]
     Active Substance: NITROGLYCERIN
  12. FUROSEMIDE. [Concomitant]
     Active Substance: FUROSEMIDE
  13. SUMATRIPTAN. [Concomitant]
     Active Substance: SUMATRIPTAN
  14. BIOTIN [Concomitant]
     Active Substance: BIOTIN
  15. NORCO [Concomitant]
     Active Substance: ACETAMINOPHEN\HYDROCODONE BITARTRATE
  16. ZYRTEC [Concomitant]
     Active Substance: CETIRIZINE HYDROCHLORIDE
  17. VESICARE [Concomitant]
     Active Substance: SOLIFENACIN SUCCINATE
  18. VITAMIN B COMPLEX [Concomitant]
     Active Substance: CYANOCOBALAMIN\DEXPANTHENOL\NIACINAMIDE\PYRIDOXINE HYDROCHLORIDE\RIBOFLAVIN 5^-PHOSPHATE SODIUM\THIAMINE HYDROCHLORIDE\VITAMIN B COMPLEX
  19. SINGULAIR [Concomitant]
     Active Substance: MONTELUKAST SODIUM
  20. OMEPRAZOLE. [Concomitant]
     Active Substance: OMEPRAZOLE
  21. HIZENTRA [Suspect]
     Active Substance: HUMAN IMMUNOGLOBULIN G
     Route: 058
  22. HIZENTRA [Suspect]
     Active Substance: HUMAN IMMUNOGLOBULIN G
     Dosage: START DATE: APR-2015
     Route: 058
  23. BUTALBITAL, ACETAMINOPHEN, AND CAFFEINE [Concomitant]
     Active Substance: ACETAMINOPHEN\BUTALBITAL\CAFFEINE
  24. PATADAY [Concomitant]
     Active Substance: OLOPATADINE HYDROCHLORIDE
  25. FAMOTIDINE. [Concomitant]
     Active Substance: FAMOTIDINE
  26. TUSSIN [Concomitant]
     Active Substance: GUAIFENESIN
  27. NAPROXEN. [Concomitant]
     Active Substance: NAPROXEN
  28. FLORASTOR [Concomitant]
     Active Substance: SACCHAROMYCES CEREVISIAE
  29. DIPHENHYDRAMINE. [Concomitant]
     Active Substance: DIPHENHYDRAMINE
  30. OMEGA 3 FISH OIL [Concomitant]
     Active Substance: FISH OIL\OMEGA-3 FATTY ACIDS
  31. NASACORT [Concomitant]
     Active Substance: TRIAMCINOLONE ACETONIDE
  32. PRENATAL [Concomitant]
     Active Substance: VITAMINS
  33. QVAR [Concomitant]
     Active Substance: BECLOMETHASONE DIPROPIONATE
  34. BETAMETHASONE. [Concomitant]
     Active Substance: BETAMETHASONE

REACTIONS (1)
  - Upper respiratory tract infection [Unknown]
